FAERS Safety Report 8214575-8 (Version None)
Quarter: 2012Q1

REPORT INFORMATION
  Report Type: 
  Country: None (occurrence: None)
  Receive Date: 20120228
  Receipt Date: 20110412
  Transmission Date: 20120608
  Serious: Yes (Death)
  Sender: FDA-Public Use
  Company Number: RB-15872-2010

PATIENT
  Age: 18 Year
  Sex: Male

DRUGS (2)
  1. SUBOXONE [Suspect]
     Indication: PRODUCT USED FOR UNKNOWN INDICATION
     Dosage: (DOSING DETAILS UNKNOWN UNKNOWN)
     Dates: end: 20091114
  2. ALCOHOL (NONE) [Suspect]
     Indication: PRODUCT USED FOR UNKNOWN INDICATION
     Dosage: (DOSING DETAILS UNKNOWN UNKNOWN)
     Dates: end: 20091114

REACTIONS (2)
  - SUBSTANCE ABUSE [None]
  - TOXICITY TO VARIOUS AGENTS [None]
